FAERS Safety Report 6552964-8 (Version None)
Quarter: 2010Q1

REPORT INFORMATION
  Report Type: 
  Country: None (occurrence: None)
  Receive Date: 20100127
  Receipt Date: 20100118
  Transmission Date: 20100710
  Serious: Yes (Other)
  Sender: FDA-Public Use
  Company Number: US-RB-001482-10

PATIENT
  Age: 72 Year
  Sex: Female

DRUGS (1)
  1. MUCINEX [Suspect]
     Dosage: TOOK THE PRODUCT FOR 2 DAYS TAKING 3 TABLETS IN TOTAL
     Route: 048
     Dates: start: 20100114

REACTIONS (2)
  - OEDEMA PERIPHERAL [None]
  - PARAESTHESIA [None]
